FAERS Safety Report 12245874 (Version 1)
Quarter: 2016Q2

REPORT INFORMATION
  Report Type: Spontaneous
  Country: SK (occurrence: SK)
  Receive Date: 20160407
  Receipt Date: 20160407
  Transmission Date: 20160815
  Serious: Yes (Other)
  Sender: FDA-Public Use
  Company Number: SK-ROCHE-1735822

PATIENT
  Sex: Female

DRUGS (3)
  1. ROACTEMRA [Suspect]
     Active Substance: TOCILIZUMAB
     Indication: RHEUMATOID ARTHRITIS
     Dosage: THERE WAS AN ADMINISTRATION IN /FEB/2016. 20 ML
     Route: 042
     Dates: start: 201111, end: 201603
  2. ROACTEMRA [Suspect]
     Active Substance: TOCILIZUMAB
     Dosage: THERE WAS AN ADMINISTRATION IN /FEB/2016. 4 ML.
     Route: 042
     Dates: start: 201111, end: 201603
  3. ROACTEMRA [Suspect]
     Active Substance: TOCILIZUMAB
     Dosage: THERE WAS AN ADMINISTRATION IN /FEB/2016. 10 ML.
     Route: 042
     Dates: start: 201111, end: 201603

REACTIONS (1)
  - Purpura [Recovered/Resolved]

NARRATIVE: CASE EVENT DATE: 20160220
